FAERS Safety Report 21840122 (Version 1)
Quarter: 2023Q1

REPORT INFORMATION
  Report Type: Spontaneous
  Country: CA (occurrence: CA)
  Receive Date: 20230110
  Receipt Date: 20230110
  Transmission Date: 20230418
  Serious: Yes (Disabling)
  Sender: FDA-Public Use
  Company Number: CA-TEVA-2023-CA-2843470

PATIENT
  Age: 60 Year
  Sex: Male
  Weight: 115 kg

DRUGS (2)
  1. NAPROXEN [Suspect]
     Active Substance: NAPROXEN
     Indication: Joint injury
     Dosage: 2000 MILLIGRAM DAILY;
  2. NAPROXEN [Suspect]
     Active Substance: NAPROXEN
     Indication: Arthralgia

REACTIONS (5)
  - Hypoaesthesia [Not Recovered/Not Resolved]
  - Impaired work ability [Not Recovered/Not Resolved]
  - Muscle injury [Not Recovered/Not Resolved]
  - Pain in extremity [Not Recovered/Not Resolved]
  - Vascular injury [Not Recovered/Not Resolved]
